FAERS Safety Report 16544380 (Version 2)
Quarter: 2019Q4

REPORT INFORMATION
  Report Type: Report from Study
  Country: None (occurrence: BE)
  Receive Date: 20190709
  Receipt Date: 20191212
  Transmission Date: 20200122
  Serious: Yes (Other)
  Sender: FDA-Public Use
  Company Number: BE-ABBVIE-19K-013-2837394-00

PATIENT
  Sex: Female

DRUGS (4)
  1. DUODOPA [Suspect]
     Active Substance: CARBIDOPA\LEVODOPA
     Dosage: MD=3ML, CD=5ML/HR DURING 16HRS, ED=2ML, ND=4ML
     Route: 050
     Dates: start: 20190621
  2. DUODOPA [Suspect]
     Active Substance: CARBIDOPA\LEVODOPA
     Indication: PARKINSON^S DISEASE
     Dosage: UNKNOWN DOSAGES
     Route: 050
     Dates: start: 20090209
  3. DUODOPA [Suspect]
     Active Substance: CARBIDOPA\LEVODOPA
     Dosage: MD=3ML, CD=4.3ML/HR DURING 16HRS, ED=2.1ML
     Route: 050
     Dates: end: 20100910
  4. DUODOPA [Suspect]
     Active Substance: CARBIDOPA\LEVODOPA
     Dosage: DOSES CONTINUOUSLY MONITORED AND ADAPTED
     Route: 050
     Dates: start: 20100910, end: 20190621

REACTIONS (5)
  - Paraesthesia [Unknown]
  - Drug dependence [Unknown]
  - Fear of disease [Unknown]
  - Polyneuropathy [Unknown]
  - Hypoaesthesia [Unknown]
